FAERS Safety Report 7424149-4 (Version None)
Quarter: 2011Q2

REPORT INFORMATION
  Report Type: 
  Country: None (occurrence: None)
  Receive Date: 20110419
  Receipt Date: 20110418
  Transmission Date: 20111010
  Serious: Yes (Other)
  Sender: FDA-Public Use
  Company Number: JP-PFIZER INC-2011084821

PATIENT
  Age: 54 Year
  Sex: Female

DRUGS (3)
  1. METHYCOBAL [Concomitant]
     Dosage: UNK
  2. XYZAL [Concomitant]
     Dosage: UNK
  3. LYRICA [Suspect]
     Indication: SCIATICA
     Dosage: 75 MG, 2X/DAY
     Route: 048
     Dates: start: 20110310, end: 20110415

REACTIONS (2)
  - ALANINE AMINOTRANSFERASE INCREASED [None]
  - ASPARTATE AMINOTRANSFERASE INCREASED [None]
